FAERS Safety Report 7263636-9 (Version None)
Quarter: 2011Q1

REPORT INFORMATION
  Report Type: 
  Country: None (occurrence: None)
  Receive Date: 20110130
  Receipt Date: 20101029
  Transmission Date: 20110831
  Serious: No
  Sender: FDA-Public Use
  Company Number: US-ABBOTT-10P-163-0682184-00

PATIENT
  Sex: Female
  Weight: 83.536 kg

DRUGS (2)
  1. ADVIL [Concomitant]
     Indication: PAIN
     Dosage: PRN
  2. HUMIRA [Suspect]
     Indication: PSORIASIS
     Dates: start: 20091101

REACTIONS (2)
  - PAIN [None]
  - PSORIASIS [None]
